FAERS Safety Report 6439881-9 (Version None)
Quarter: 2009Q4

REPORT INFORMATION
  Report Type: 
  Country: None (occurrence: None)
  Receive Date: 20091113
  Receipt Date: 20090128
  Transmission Date: 20100525
  Serious: Yes (Hospitalization)
  Sender: FDA-Public Use
  Company Number: RU-PFIZER INC-2009164804

PATIENT
  Age: 13 Year
  Sex: Male
  Weight: 88 kg

DRUGS (2)
  1. ZIPRASIDONE HCL [Suspect]
     Indication: SCHIZOPHRENIA
     Dosage: NO DOSE GIVEN
  2. CLOZAPINE [Suspect]
     Route: 048
     Dates: end: 20090121

REACTIONS (3)
  - AGITATION [None]
  - HOSTILITY [None]
  - INSOMNIA [None]
